FAERS Safety Report 9523844 (Version 1)
Quarter: 2013Q1

REPORT INFORMATION
  Report Type: Spontaneous
  Country: US (occurrence: None)
  Receive Date: 20130305
  Receipt Date: 20130305
  Transmission Date: 20140127
  Serious: Yes (Other)
  Sender: FDA-Public Use
  Company Number: 163-21880-12031829

PATIENT
  Age: 73 Year
  Sex: Male
  Weight: 70.76 kg

DRUGS (3)
  1. REVLIMID (LENALIDOMIDE) (25 MILLIGRAM, CAPSULES) [Suspect]
     Indication: PLASMA CELL MYELOMA
     Dosage: 25 MG, DAY FOR 14/21 DAYS, PO
     Route: 048
     Dates: start: 201112, end: 201112
  2. FERROUS FUMARATE (FERROUS FUMARATE) (325 MILLIGRAM, TABLETS) [Concomitant]
  3. CALCIUM (CALCIUM) (TABLETS) [Concomitant]

REACTIONS (3)
  - Decreased appetite [None]
  - Nausea [None]
  - Weight decreased [None]
